FAERS Safety Report 13913753 (Version 1)
Quarter: 2017Q3

REPORT INFORMATION
  Report Type: Spontaneous
  Country: FR (occurrence: FR)
  Receive Date: 20170829
  Receipt Date: 20170829
  Transmission Date: 20171127
  Serious: Yes (Life-Threatening, Other)
  Sender: FDA-Public Use
  Company Number: FR-MYLANLABS-2017M1052660

PATIENT

DRUGS (37)
  1. ETOPOPHOS [Suspect]
     Active Substance: ETOPOSIDE PHOSPHATE
     Indication: TRANSPLANT
     Dosage: 200 MG, BID
     Route: 041
     Dates: start: 20161105, end: 20161106
  2. MESNA. [Suspect]
     Active Substance: MESNA
     Dosage: UNK
     Dates: start: 20161108
  3. PRIMPERAN [Suspect]
     Active Substance: METOCLOPRAMIDE HYDROCHLORIDE
     Dosage: 60 MG, UNK
     Dates: start: 20161108
  4. CYCLOPHOSPHAMIDE. [Suspect]
     Active Substance: CYCLOPHOSPHAMIDE
     Indication: PRODUCT USED FOR UNKNOWN INDICATION
     Dosage: UNK
     Dates: start: 20161103
  5. BICNU [Suspect]
     Active Substance: CARMUSTINE
     Indication: TRANSPLANT
     Dosage: 600 MG, ONCE
     Route: 041
     Dates: start: 20161103, end: 20161103
  6. ZOPHREN [Suspect]
     Active Substance: ONDANSETRON
     Indication: PRODUCT USED FOR UNKNOWN INDICATION
     Dosage: UNK
     Route: 042
     Dates: start: 20161103
  7. MESNA. [Suspect]
     Active Substance: MESNA
     Indication: PRODUCT USED FOR UNKNOWN INDICATION
     Dosage: UNK
     Route: 042
     Dates: start: 20161105
  8. TIORFAN [Suspect]
     Active Substance: RACECADOTRIL
     Indication: PRODUCT USED FOR UNKNOWN INDICATION
     Dosage: UNK
     Dates: start: 20161107, end: 20161108
  9. ETOPOSIDE MYLAN 20 MG/ML, SOLUTION ? DILUER POUR PERFUSION [Suspect]
     Active Substance: ETOPOSIDE
     Dosage: 200 MG, UNK
     Route: 041
     Dates: start: 20161104, end: 20161107
  10. CYTARABINE. [Suspect]
     Active Substance: CYTARABINE
     Dosage: 400 MG, BID
     Route: 041
     Dates: start: 20161104, end: 20161107
  11. MESNA. [Suspect]
     Active Substance: MESNA
     Dosage: UNK
     Dates: start: 20161107
  12. ZOPHREN [Suspect]
     Active Substance: ONDANSETRON
     Dosage: UNK
     Dates: start: 20161104
  13. ZOPHREN [Suspect]
     Active Substance: ONDANSETRON
     Dosage: UNK
     Dates: start: 20161106
  14. SOLU-MEDROL [Suspect]
     Active Substance: METHYLPREDNISOLONE SODIUM SUCCINATE
     Dosage: UNK
     Dates: start: 20161106
  15. PRIMPERAN [Suspect]
     Active Substance: METOCLOPRAMIDE HYDROCHLORIDE
     Dosage: 10 MG, UNK
     Dates: start: 20161107
  16. AXEPIM [Suspect]
     Active Substance: CEFEPIME HYDROCHLORIDE
     Indication: PRODUCT USED FOR UNKNOWN INDICATION
     Dosage: UNK
     Dates: start: 20161108, end: 20161109
  17. AMIKLIN [Suspect]
     Active Substance: AMIKACIN SULFATE
     Indication: PRODUCT USED FOR UNKNOWN INDICATION
     Dosage: UNK
     Dates: start: 20161108
  18. LASILIX [Suspect]
     Active Substance: FUROSEMIDE
     Indication: PRODUCT USED FOR UNKNOWN INDICATION
     Dosage: UNK
     Dates: start: 20161109
  19. ENDOXAN [Suspect]
     Active Substance: CYCLOPHOSPHAMIDE
     Indication: TRANSPLANT
     Dosage: 3000 MG, ONCE
     Route: 041
     Dates: start: 20161104, end: 20161107
  20. ZOPHREN [Suspect]
     Active Substance: ONDANSETRON
     Dosage: UNK
     Dates: start: 20161105
  21. PRIMPERAN [Suspect]
     Active Substance: METOCLOPRAMIDE HYDROCHLORIDE
     Indication: PRODUCT USED FOR UNKNOWN INDICATION
     Dosage: 10 MG, UNK
     Dates: start: 20161106
  22. SMECTA [Suspect]
     Active Substance: MONTMORILLONITE
     Indication: PRODUCT USED FOR UNKNOWN INDICATION
     Dosage: UNK
  23. CARMUSTINE [Suspect]
     Active Substance: CARMUSTINE
     Indication: PRODUCT USED FOR UNKNOWN INDICATION
     Dosage: UNK
     Dates: start: 20161103
  24. ZOPHREN [Suspect]
     Active Substance: ONDANSETRON
     Dosage: UNK
     Dates: start: 20161107
  25. SOLU-MEDROL [Suspect]
     Active Substance: METHYLPREDNISOLONE SODIUM SUCCINATE
     Dosage: UNK
     Dates: start: 20161107
  26. SOLU-MEDROL [Suspect]
     Active Substance: METHYLPREDNISOLONE SODIUM SUCCINATE
     Dosage: UNK
     Dates: start: 20161108
  27. MESNA. [Suspect]
     Active Substance: MESNA
     Dosage: UNK
     Dates: start: 20161106
  28. LARGACTIL [Suspect]
     Active Substance: CHLORPROMAZINE
     Indication: PRODUCT USED FOR UNKNOWN INDICATION
     Dosage: UNK
     Dates: start: 20161109
  29. ETOPOSIDE MYLAN 20 MG/ML, SOLUTION ? DILUER POUR PERFUSION [Suspect]
     Active Substance: ETOPOSIDE
     Indication: TRANSPLANT
     Dosage: 100 MG/M2, BID
     Dates: start: 20161103
  30. PARACETAMOL [Suspect]
     Active Substance: ACETAMINOPHEN
     Indication: PRODUCT USED FOR UNKNOWN INDICATION
     Dosage: UNK
     Route: 042
     Dates: start: 20161103
  31. POLARAMINE [Suspect]
     Active Substance: DEXCHLORPHENIRAMINE MALEATE
     Indication: PRODUCT USED FOR UNKNOWN INDICATION
     Dosage: UNK
     Dates: start: 20161103
  32. SOLU-MEDROL [Suspect]
     Active Substance: METHYLPREDNISOLONE SODIUM SUCCINATE
     Dosage: UNK
     Dates: start: 20161105
  33. PARACETAMOL [Suspect]
     Active Substance: ACETAMINOPHEN
     Dosage: UNK
     Dates: start: 20161108
  34. CYTARABINE. [Suspect]
     Active Substance: CYTARABINE
     Indication: TRANSPLANT
     Dosage: 200 MG/M2, BID
     Dates: start: 20161103
  35. ZOPHREN [Suspect]
     Active Substance: ONDANSETRON
     Dosage: UNK
     Dates: start: 20161108
  36. ZOPHREN [Suspect]
     Active Substance: ONDANSETRON
     Dosage: UNK
     Dates: start: 20161109
  37. SOLU-MEDROL [Suspect]
     Active Substance: METHYLPREDNISOLONE SODIUM SUCCINATE
     Indication: PRODUCT USED FOR UNKNOWN INDICATION
     Dosage: UNK
     Route: 042
     Dates: start: 20161104

REACTIONS (2)
  - Pulmonary toxicity [Recovering/Resolving]
  - Cardiotoxicity [Recovering/Resolving]

NARRATIVE: CASE EVENT DATE: 20161109
